FAERS Safety Report 25808490 (Version 1)
Quarter: 2025Q3

REPORT INFORMATION
  Report Type: Spontaneous
  Country: US (occurrence: None)
  Receive Date: 20250915
  Receipt Date: 20250915
  Transmission Date: 20251021
  Serious: Yes (Hospitalization)
  Sender: FDA-CTU
  Company Number: None

PATIENT
  Age: 66 Year
  Sex: Female
  Weight: 87.1 kg

DRUGS (9)
  1. TALTZ [Suspect]
     Active Substance: IXEKIZUMAB
     Indication: Pustular psoriasis
     Dosage: OTHER FREQUENCY : EVERY 14 DAYS;?
     Route: 058
     Dates: start: 20250813, end: 20250909
  2. clobetasol prop [Concomitant]
  3. PRALUENT [Concomitant]
     Active Substance: ALIROCUMAB
  4. LATANOPROST [Concomitant]
     Active Substance: LATANOPROST
  5. METHOCARBAMOL [Concomitant]
     Active Substance: METHOCARBAMOL
  6. PANTOPRAZOLE SODIUM [Concomitant]
     Active Substance: PANTOPRAZOLE SODIUM
  7. LISINOPRIL [Concomitant]
     Active Substance: LISINOPRIL
  8. LISINOPRIL [Concomitant]
     Active Substance: LISINOPRIL
  9. PREGABALIN [Concomitant]
     Active Substance: PREGABALIN

REACTIONS (2)
  - Drug hypersensitivity [None]
  - Injection site reaction [None]

NARRATIVE: CASE EVENT DATE: 20250909
